FAERS Safety Report 10711326 (Version 1)
Quarter: 2015Q1

REPORT INFORMATION
  Report Type: Spontaneous
  Country: US (occurrence: US)
  Receive Date: 20150114
  Receipt Date: 20150114
  Transmission Date: 20150721
  Serious: No
  Sender: FDA-Public Use
  Company Number: US-009507513-1501USA004013

PATIENT
  Age: 38 Year
  Sex: Female

DRUGS (2)
  1. PEN INJECTOR [Suspect]
     Active Substance: DEVICE
     Indication: OVULATION INDUCTION
     Dosage: AS PRESCRIBED
     Route: 058
     Dates: start: 2010
  2. FOLLISTIM [Concomitant]
     Active Substance: FOLLITROPIN
     Indication: OVULATION INDUCTION
     Dosage: AS PRESCRIBED
     Route: 058
     Dates: start: 2010

REACTIONS (4)
  - Incorrect dose administered by device [Unknown]
  - Underdose [Unknown]
  - Device malfunction [Unknown]
  - Anovulatory cycle [Not Recovered/Not Resolved]

NARRATIVE: CASE EVENT DATE: 20150107
